FAERS Safety Report 8217520 (Version 4)
Quarter: 2012Q4

REPORT INFORMATION
  Report Type: Report from Study
  Country: DE (occurrence: DE)
  Receive Date: 20111101
  Receipt Date: 20120914
  Transmission Date: 20130627
  Serious: Yes (Hospitalization)
  Sender: FDA-Public Use
  Company Number: DE-MILLENNIUM PHARMACEUTICALS, INC.-2011-05129

PATIENT

DRUGS (7)
  1. VELCADE [Suspect]
     Indication: MULTIPLE MYELOMA
     Dosage: 2.17 mg, UNK
     Route: 042
     Dates: start: 20111019, end: 20111019
  2. ADRIAMYCIN                         /00330901/ [Concomitant]
     Indication: MULTIPLE MYELOMA
     Dosage: 15 mg, UNK
     Route: 042
     Dates: start: 20111019, end: 20111021
  3. DEXAMETHASONE [Concomitant]
     Indication: MULTIPLE MYELOMA
     Dosage: 20 mg, UNK
     Route: 048
     Dates: start: 20111019, end: 20111022
  4. CITALOPRAM [Concomitant]
     Indication: DEPRESSION
     Dosage: 20 mg, UNK
     Route: 048
     Dates: start: 201109, end: 20111021
  5. FLUCONAZOLE [Concomitant]
     Indication: PROPHYLAXIS
     Dosage: 200 mg, UNK
     Route: 048
     Dates: start: 20111019, end: 20111022
  6. ACYCLOVIR                          /00587301/ [Concomitant]
     Indication: PROPHYLAXIS
     Dosage: 400 mg, UNK
     Route: 048
     Dates: start: 20111019
  7. COTRIM [Concomitant]
     Indication: PROPHYLAXIS
     Dosage: 960 mg, UNK
     Route: 048
     Dates: start: 20111019, end: 20111022

REACTIONS (2)
  - Blood lactate dehydrogenase increased [Recovered/Resolved]
  - Dyspnoea [Recovered/Resolved]
